FAERS Safety Report 4813794-8 (Version None)
Quarter: 2005Q4

REPORT INFORMATION
  Report Type: 
  Country: None (occurrence: None)
  Receive Date: 20051026
  Receipt Date: 20051007
  Transmission Date: 20060501
  Serious: Yes (Hospitalization)
  Sender: FDA-Public Use
  Company Number: USA0509109442

PATIENT
  Age: 31 Year
  Sex: Female

DRUGS (1)
  1. FORTEO [Suspect]
     Indication: ARTHRITIS
     Dates: start: 20040101

REACTIONS (8)
  - ANXIETY [None]
  - BRONCHITIS [None]
  - CHEST PAIN [None]
  - DIZZINESS [None]
  - FLATULENCE [None]
  - INFLAMMATION [None]
  - PHARMACEUTICAL PRODUCT COMPLAINT [None]
  - SENSATION OF HEAVINESS [None]
